FAERS Safety Report 21831701 (Version 4)
Quarter: 2023Q1

REPORT INFORMATION
  Report Type: Report from Study
  Country: DE (occurrence: DE)
  Receive Date: 20230106
  Receipt Date: 20230323
  Transmission Date: 20230418
  Serious: Yes (Other)
  Sender: FDA-Public Use
  Company Number: DE-GILEAD-2022-0607657

PATIENT
  Age: 68 Year
  Sex: Male
  Weight: 87 kg

DRUGS (52)
  1. BREXUCABTAGENE AUTOLEUCEL [Suspect]
     Active Substance: BREXUCABTAGENE AUTOLEUCEL
     Indication: Mantle cell lymphoma
     Dosage: ^68^ (UNITS NOT PROVIDED)
     Route: 042
     Dates: start: 20221128, end: 20221128
  2. FLUDARABINE [Suspect]
     Active Substance: FLUDARABINE PHOSPHATE
     Indication: Mantle cell lymphoma
     Dosage: ^58^ (UNITS NOT PROVIDED)
     Route: 065
     Dates: start: 20221123, end: 20221125
  3. CYCLOPHOSPHAMIDE [Suspect]
     Active Substance: CYCLOPHOSPHAMIDE
     Indication: Mantle cell lymphoma
     Dosage: ^973^ (UNITS NOT PROVIDED)
     Route: 065
     Dates: start: 20221123, end: 20221125
  4. PAROXETINE HYDROCHLORIDE [Concomitant]
     Active Substance: PAROXETINE HYDROCHLORIDE
     Dosage: 20,MG,DAILY
     Route: 048
     Dates: start: 2007
  5. QUETIAPINE [Concomitant]
     Active Substance: QUETIAPINE
     Dosage: 100,MG,DAILY
     Route: 048
     Dates: start: 2007
  6. LEVOTHYROXINE [Concomitant]
     Active Substance: LEVOTHYROXINE
     Dosage: 100,UG,DAILY
     Route: 048
     Dates: start: 2012
  7. LATANOTIM [Concomitant]
     Dosage: 50,UG,DAILY
     Route: 050
     Dates: start: 2020
  8. BACLOFEN [Concomitant]
     Active Substance: BACLOFEN
     Dosage: 10,MG,DAILY
     Route: 048
     Dates: start: 2021
  9. FRAGMIN [Concomitant]
     Active Substance: DALTEPARIN SODIUM
     Dosage: 5000,IU,DAILY
     Route: 058
     Dates: start: 20221122
  10. GRANISETRON HYDROCHLORIDE [Concomitant]
     Active Substance: GRANISETRON HYDROCHLORIDE
     Dosage: 1,MG,DAILY
     Route: 042
     Dates: start: 20221123
  11. PANTOPRAZOLE [Concomitant]
     Active Substance: PANTOPRAZOLE
     Dosage: 40,MG,DAILY
     Route: 048
     Dates: start: 20221123
  12. ALLOPURINOL [Concomitant]
     Active Substance: ALLOPURINOL
     Dosage: 300,MG,DAILY
     Route: 048
     Dates: start: 20221123
  13. ACYCLOVIR [Concomitant]
     Active Substance: ACYCLOVIR
     Dosage: 800,MG,TWICE DAILY
     Route: 048
     Dates: start: 20221123
  14. ACYCLOVIR [Concomitant]
     Active Substance: ACYCLOVIR
     Dosage: 1000,MG,TWICE DAILY
     Route: 042
     Dates: start: 20221107, end: 20221213
  15. ACYCLOVIR [Concomitant]
     Active Substance: ACYCLOVIR
     Dosage: 800,MG,TWICE DAILY
     Route: 048
     Dates: start: 20221114
  16. FUROSEMIDE [Concomitant]
     Active Substance: FUROSEMIDE
     Dosage: 40,MG,ONCE
     Route: 042
     Dates: start: 20221124, end: 20221124
  17. RAMIPRIL [Concomitant]
     Active Substance: RAMIPRIL
     Dosage: 5,MG,DAILY
     Route: 048
     Dates: start: 20221125, end: 20221126
  18. RAMIPRIL [Concomitant]
     Active Substance: RAMIPRIL
     Dosage: 5,MG,TWICE DAILY
     Route: 048
     Dates: start: 20221126, end: 20221203
  19. AMLODIPINE [Concomitant]
     Active Substance: AMLODIPINE BESYLATE
     Dosage: 5,MG,DAILY
     Route: 048
     Dates: start: 20221202, end: 20221203
  20. NOREPINEPHRINE [Concomitant]
     Active Substance: NOREPINEPHRINE
     Dosage: 5,MG,OTHER
     Route: 042
     Dates: start: 20221202, end: 20221203
  21. TAZOBAC [TAZOBACTAM] [Concomitant]
     Dosage: 4,5,G,THREE TIMES DAILY
     Route: 042
     Dates: start: 20221202
  22. TOCILIZUMAB [Concomitant]
     Active Substance: TOCILIZUMAB
     Dosage: 800,MG,DAILY
     Route: 042
     Dates: start: 20221202, end: 20221202
  23. TOCILIZUMAB [Concomitant]
     Active Substance: TOCILIZUMAB
     Dosage: 800,MG,DAILY
     Route: 042
     Dates: start: 20221203, end: 20221203
  24. TOCILIZUMAB [Concomitant]
     Active Substance: TOCILIZUMAB
     Dosage: 800,MG,DAILY
     Route: 042
     Dates: start: 20221204, end: 20221204
  25. DEXAMETHASONE [Concomitant]
     Active Substance: DEXAMETHASONE
     Dosage: 40,MG,DAILY
     Route: 042
     Dates: start: 20221203
  26. LEVOTHYROXINE SODIUM [Concomitant]
     Active Substance: LEVOTHYROXINE SODIUM
     Dosage: 100,UG,DAILY
     Route: 042
     Dates: start: 20221107, end: 20221213
  27. LEVOTHYROXINE SODIUM [Concomitant]
     Active Substance: LEVOTHYROXINE SODIUM
     Dosage: 100,UG,DAILY
     Route: 048
     Dates: start: 20221212
  28. CLOBAZAM [Concomitant]
     Active Substance: CLOBAZAM
     Dosage: 10,MG,TWICE DAILY
     Route: 048
     Dates: start: 20221126, end: 20221206
  29. ACETAMINOPHEN [Concomitant]
     Active Substance: ACETAMINOPHEN
     Dosage: 1,G,ONCE
     Route: 042
     Dates: start: 20221128, end: 20221128
  30. DIMETHINDENE [Concomitant]
     Active Substance: DIMETHINDENE
     Dosage: 4,MG,ONCE
     Route: 042
     Dates: start: 20221128, end: 20221128
  31. H2 BLOCKER [CIMETIDINE] [Concomitant]
     Dosage: 200,MG,ONCE
     Route: 042
     Dates: start: 20221128, end: 20221128
  32. PERFALGAN [Concomitant]
     Active Substance: ACETAMINOPHEN
     Dosage: 1,G,OTHER
     Route: 042
     Dates: start: 20221202, end: 20221220
  33. OXYGEN [Concomitant]
     Active Substance: OXYGEN
     Dosage: 1-4,L,CONTINUOUS
     Route: 045
     Dates: start: 20221203, end: 20221212
  34. METAMIZOLE [Concomitant]
     Active Substance: METAMIZOLE
     Dosage: 4,G,CONTINUOUS
     Route: 042
     Dates: start: 20221205, end: 20221207
  35. ANAKINRA [Concomitant]
     Active Substance: ANAKINRA
     Dosage: 100,MG,DAILY
     Route: 058
     Dates: start: 20221205, end: 20221216
  36. METHYLPREDNISOLONE [Concomitant]
     Active Substance: METHYLPREDNISOLONE
     Dosage: 1,G,DAILY
     Route: 042
     Dates: start: 20221205, end: 20221212
  37. METHYLPREDNISOLONE [Concomitant]
     Active Substance: METHYLPREDNISOLONE
     Dosage: 500,MG,DAILY
     Route: 042
     Dates: start: 20221213, end: 20221215
  38. METHYLPREDNISOLONE [Concomitant]
     Active Substance: METHYLPREDNISOLONE
     Dosage: 250,MG,DAILY
     Route: 042
     Dates: start: 20221216, end: 20221217
  39. KEPPRA [Concomitant]
     Active Substance: LEVETIRACETAM
     Dosage: 750,MG,TWICE DAILY
     Route: 042
     Dates: start: 20221206, end: 20221213
  40. KEPPRA [Concomitant]
     Active Substance: LEVETIRACETAM
     Dosage: 750,MG,TWICE DAILY
     Route: 048
     Dates: start: 20221214
  41. PANTOZOL [Concomitant]
     Active Substance: PANTOPRAZOLE SODIUM
     Dosage: 40,MG,DAILY
     Route: 042
     Dates: start: 20221207, end: 20221213
  42. POTASSIUM [Concomitant]
     Active Substance: POTASSIUM
     Dosage: 6,OTHER,CONTINUOUS
     Route: 042
     Dates: start: 20221207, end: 20221219
  43. CLONIDINE [Concomitant]
     Active Substance: CLONIDINE
     Dosage: 15,MG,CONTINUOUS
     Route: 042
     Dates: start: 20221208, end: 20221211
  44. URAPIDIL [Concomitant]
     Active Substance: URAPIDIL
     Dosage: 100,MG,CONTINUOUS
     Route: 042
     Dates: start: 20221208, end: 20221211
  45. METHOTREXATE SODIUM [Concomitant]
     Active Substance: METHOTREXATE SODIUM
     Dosage: 12,MG,ONCE
     Route: 050
     Dates: start: 20221208, end: 20221208
  46. MIDAZOLAM [Concomitant]
     Active Substance: MIDAZOLAM
     Dosage: 8,MG,ONCE
     Route: 042
     Dates: start: 20221208, end: 20221208
  47. DIAZEPAM [Concomitant]
     Active Substance: DIAZEPAM
     Dosage: 2,5,MG,OTHER
     Route: 042
     Dates: start: 20221209, end: 20221220
  48. QUETIPIN [Concomitant]
     Dosage: 100,MG,DAILY
     Route: 048
     Dates: start: 20221212
  49. POSACONAZOLE [Concomitant]
     Active Substance: POSACONAZOLE
     Dosage: 300,MG,DAILY
     Route: 048
     Dates: start: 20221219, end: 20230105
  50. COTRIM [Concomitant]
     Active Substance: SULFAMETHOXAZOLE\TRIMETHOPRIM
     Dosage: 960,MG,OTHER
     Route: 048
     Dates: start: 20221219, end: 20221226
  51. CALCIUM CARBONATE\CHOLECALCIFEROL [Concomitant]
     Active Substance: CALCIUM CARBONATE\CHOLECALCIFEROL
     Dosage: 500,MG,TWICE DAILY
     Route: 048
     Dates: start: 20221219
  52. METFORMIN [Concomitant]
     Active Substance: METFORMIN HYDROCHLORIDE
     Dosage: 500,MG,TWICE DAILY
     Route: 048
     Dates: start: 202301

REACTIONS (4)
  - Cytokine release syndrome [Recovered/Resolved]
  - Pyrexia [Recovered/Resolved]
  - Hypotension [Recovered/Resolved]
  - Hypoxia [Recovered/Resolved]

NARRATIVE: CASE EVENT DATE: 20221202
